FAERS Safety Report 16982196 (Version 1)
Quarter: 2019Q4

REPORT INFORMATION
  Report Type: Spontaneous
  Country: FR (occurrence: FR)
  Receive Date: 20191101
  Receipt Date: 20191101
  Transmission Date: 20200122
  Serious: Yes (Hospitalization)
  Sender: FDA-Public Use
  Company Number: FR-TEVA-2019-FR-1130065

PATIENT
  Age: 57 Year
  Sex: Female
  Weight: 58 kg

DRUGS (6)
  1. AGOMELATINE [Concomitant]
     Active Substance: AGOMELATINE
     Indication: BIPOLAR DISORDER
     Dosage: 50 MILLIGRAM PER DAY
     Route: 048
  2. SERTRALINE [Interacting]
     Active Substance: SERTRALINE HYDROCHLORIDE
     Indication: DEPRESSION
     Dosage: 50 MILLIGRAM PER DAY
     Route: 048
     Dates: end: 201904
  3. IBUPROFENE [Interacting]
     Active Substance: IBUPROFEN
     Indication: HEADACHE
     Route: 048
     Dates: start: 201902, end: 201903
  4. TRAMADOL BASE [Suspect]
     Active Substance: TRAMADOL
     Indication: PAIN
     Route: 048
  5. LAMOTRIGINE. [Concomitant]
     Active Substance: LAMOTRIGINE
     Indication: BIPOLAR DISORDER
     Dosage: 100 MILLIGRAM PER DAY
     Route: 048
  6. LEVOTHYROXINE SODIQUE [Concomitant]
     Active Substance: LEVOTHYROXINE SODIUM
     Indication: HYPOTHYROIDISM
     Dosage: 75 MICROGRAM PER DAY
     Route: 048

REACTIONS (4)
  - Hypertension [Recovered/Resolved]
  - Drug interaction [Recovered/Resolved]
  - Posterior reversible encephalopathy syndrome [Recovered/Resolved]
  - Hemiplegia [Recovered/Resolved]

NARRATIVE: CASE EVENT DATE: 20190330
